FAERS Safety Report 17439175 (Version 1)
Quarter: 2020Q1

REPORT INFORMATION
  Report Type: Spontaneous
  Country: US (occurrence: US)
  Receive Date: 20200219
  Receipt Date: 20200219
  Transmission Date: 20200409
  Serious: No
  Sender: FDA-Public Use
  Company Number: None

PATIENT
  Age: 75 Year
  Sex: Male
  Weight: 72 kg

DRUGS (10)
  1. VITAMINE D [Concomitant]
     Active Substance: CHOLECALCIFEROL
  2. DUTASTERIDE. [Concomitant]
     Active Substance: DUTASTERIDE
  3. TECFIDERA [Concomitant]
     Active Substance: DIMETHYL FUMARATE
  4. ASPIRIN. [Concomitant]
     Active Substance: ASPIRIN
  5. MIRALAX [Concomitant]
     Active Substance: POLYETHYLENE GLYCOL 3350
  6. PROLIA [Suspect]
     Active Substance: DENOSUMAB
     Indication: OSTEOPOROSIS
     Dosage: ?          OTHER ROUTE:SHOT IN ARM?
  7. LEVOTHYROXINE. [Concomitant]
     Active Substance: LEVOTHYROXINE
  8. PROLIA [Concomitant]
     Active Substance: DENOSUMAB
  9. CALCIUM [Concomitant]
     Active Substance: CALCIUM
  10. PRAVASTATINE [Concomitant]
     Active Substance: PRAVASTATIN

REACTIONS (1)
  - Alopecia [None]
